FAERS Safety Report 10379668 (Version 1)
Quarter: 2014Q3

REPORT INFORMATION
  Report Type: Spontaneous
  Country: US (occurrence: US)
  Receive Date: 20140812
  Receipt Date: 20140812
  Transmission Date: 20150326
  Serious: Yes (Hospitalization, Other)
  Sender: FDA-Public Use
  Company Number: US-SHIRE-US201404439

PATIENT
  Age: 16 Year
  Sex: Female

DRUGS (1)
  1. 433 (CARBAMAZEPINE) [Suspect]
     Active Substance: CARBAMAZEPINE
     Indication: INTENTIONAL OVERDOSE
     Dosage: 200 MG CAPSULES, APPROXIMATELY TWENTY, ONE DOSE
     Route: 048

REACTIONS (6)
  - Unresponsive to stimuli [Recovered/Resolved]
  - Intentional overdose [Recovered/Resolved]
  - Drug diversion [Recovered/Resolved]
  - Dystonia [Recovered/Resolved]
  - Bundle branch block right [Recovered/Resolved]
  - Diabetes insipidus [Recovered/Resolved]
